FAERS Safety Report 23125208 (Version 2)
Quarter: 2024Q3

REPORT INFORMATION
  Report Type: Report from Study
  Country: JP (occurrence: JP)
  Receive Date: 20231030
  Receipt Date: 20240816
  Transmission Date: 20241016
  Serious: Yes (Hospitalization)
  Sender: GRIFOLS
  Company Number: JP-IGSA-BIG0026235

PATIENT
  Age: 70 Year
  Sex: Male
  Weight: 48 kg

DRUGS (11)
  1. .ALPHA.1-PROTEINASE INHIBITOR HUMAN [Suspect]
     Active Substance: .ALPHA.1-PROTEINASE INHIBITOR HUMAN
     Indication: Alpha-1 antitrypsin deficiency
     Dosage: 2800 MILLIGRAM, UNKNOWN
     Dates: start: 20210806
  2. BISOPROLOL FUMARATE [Concomitant]
     Active Substance: BISOPROLOL FUMARATE
     Dosage: 0.63 MILLIGRAM, QD
     Route: 048
  3. TOCOPHERYL NICOTINATE, D-.ALPHA. [Concomitant]
     Active Substance: TOCOPHERYL NICOTINATE, D-.ALPHA.
     Dosage: 200 MILLIGRAM, QD
     Route: 048
  4. BONALON [Concomitant]
     Active Substance: ALENDRONATE SODIUM
     Dosage: 35 MILLIGRAM, QD
     Route: 048
  5. TOPIROXOSTAT [Concomitant]
     Active Substance: TOPIROXOSTAT
     Dosage: 40 MILLIGRAM, QD
     Route: 048
  6. OLODATEROL HYDROCHLORIDE\TIOTROPIUM BROMIDE MONOHYDRATE [Concomitant]
     Active Substance: OLODATEROL HYDROCHLORIDE\TIOTROPIUM BROMIDE MONOHYDRATE
     Dosage: 5 MICROGRAM, QD
  7. THEO-DUR [Concomitant]
     Active Substance: THEOPHYLLINE ANHYDROUS
     Dosage: 400 MILLIGRAM, QD
     Route: 048
  8. PRASUGREL HYDROCHLORIDE [Concomitant]
     Active Substance: PRASUGREL HYDROCHLORIDE
     Indication: Cerebral infarction
     Dosage: 3.75 MILLIGRAM, QD
     Route: 048
     Dates: start: 20230417
  9. VONOPRAZAN FUMARATE [Concomitant]
     Active Substance: VONOPRAZAN FUMARATE
     Indication: Prophylaxis
     Dosage: 10 MILLIGRAM, QD
     Route: 048
     Dates: start: 20230410
  10. ELIQUIS [Suspect]
     Active Substance: APIXABAN
  11. HERBALS [Concomitant]
     Active Substance: HERBALS
     Indication: Prophylaxis
     Dosage: 3 GRAM, QD
     Route: 048
     Dates: start: 20240426

REACTIONS (1)
  - Diverticulum intestinal haemorrhagic [Recovered/Resolved]

NARRATIVE: CASE EVENT DATE: 20231006
